FAERS Safety Report 9745467 (Version 1)
Quarter: 2013Q4

REPORT INFORMATION
  Report Type: Spontaneous
  Country: US (occurrence: None)
  Receive Date: 20131206
  Receipt Date: 20131206
  Transmission Date: 20140711
  Serious: No
  Sender: FDA-Public Use
  Company Number: None

PATIENT
  Age: 74 Year
  Sex: Male
  Weight: 81.65 kg

DRUGS (1)
  1. AMIODARONE [Suspect]
     Indication: CARDIAC DISORDER
     Dosage: 1 PILL ONCE DAILY
     Dates: start: 20130829, end: 20131022

REACTIONS (12)
  - Respiratory failure [None]
  - Pulmonary oedema [None]
  - Myocardial oedema [None]
  - Pulmonary fibrosis [None]
  - Pyrexia [None]
  - Anuria [None]
  - Infection [None]
  - Blood pressure fluctuation [None]
  - Fear [None]
  - Nervousness [None]
  - Dyspnoea [None]
  - Pulmonary toxicity [None]
